FAERS Safety Report 23064553 (Version 3)
Quarter: 2023Q4

REPORT INFORMATION
  Report Type: Report from Study
  Country: EG (occurrence: EG)
  Receive Date: 20231013
  Receipt Date: 20231013
  Transmission Date: 20240110
  Serious: Yes (Death)
  Sender: FDA-Public Use
  Company Number: EG-002147023-NVSC2023EG221103

PATIENT
  Sex: Male

DRUGS (2)
  1. VALSARTAN [Suspect]
     Active Substance: VALSARTAN
     Indication: Cardiac failure
     Dosage: UNK (REPORTER DID NOT REMEMBER EXACT DATE BUT STATED HE TOOK TAREG FOR MORE THAN 10 YEARS)
     Route: 048
     Dates: end: 20230315
  2. ENTRESTO [Suspect]
     Active Substance: SACUBITRIL\VALSARTAN
     Indication: Cardiac failure
     Dosage: UNK
     Route: 048

REACTIONS (2)
  - Death [Fatal]
  - Contraindicated product administered [Unknown]
